FAERS Safety Report 17688948 (Version 3)
Quarter: 2022Q1

REPORT INFORMATION
  Report Type: Report from Study
  Country: US (occurrence: US)
  Receive Date: 20200421
  Receipt Date: 20220113
  Transmission Date: 20220423
  Serious: Yes (Other)
  Sender: FDA-Public Use
  Company Number: US-SHIRE-US202013888

PATIENT
  Sex: Male
  Weight: 88 kg

DRUGS (27)
  1. TEDUGLUTIDE [Suspect]
     Active Substance: TEDUGLUTIDE
     Indication: Short-bowel syndrome
     Dosage: 0.38 MILLILITER, QD
     Route: 058
     Dates: start: 201608
  2. TEDUGLUTIDE [Suspect]
     Active Substance: TEDUGLUTIDE
     Indication: Short-bowel syndrome
     Dosage: 0.38 MILLILITER, QD
     Route: 058
     Dates: start: 201608
  3. TEDUGLUTIDE [Suspect]
     Active Substance: TEDUGLUTIDE
     Indication: Short-bowel syndrome
     Dosage: 0.38 MILLILITER, QD
     Route: 058
     Dates: start: 201608
  4. TEDUGLUTIDE [Suspect]
     Active Substance: TEDUGLUTIDE
     Indication: Short-bowel syndrome
     Dosage: 0.38 MILLILITER, QD
     Route: 058
     Dates: start: 201608
  5. COLESTIPOL HYDROCHLORIDE [Concomitant]
     Active Substance: COLESTIPOL HYDROCHLORIDE
  6. LUNESTA [Concomitant]
     Active Substance: ESZOPICLONE
  7. MELATONIN [Concomitant]
     Active Substance: MELATONIN
  8. VITAMINS [Concomitant]
     Active Substance: VITAMINS
  9. VITAMIN C [Concomitant]
     Active Substance: ASCORBIC ACID
  10. FISH OIL [Concomitant]
     Active Substance: FISH OIL
  11. VITAMIN D2 [Concomitant]
     Active Substance: ERGOCALCIFEROL
  12. DIETARY SUPPLEMENT\PROBIOTICS [Concomitant]
     Active Substance: DIETARY SUPPLEMENT\PROBIOTICS
  13. TETRAHYDROZOLINE HYDROCHLORIDE [Concomitant]
     Active Substance: TETRAHYDROZOLINE HYDROCHLORIDE
  14. TYLENOL [Concomitant]
     Active Substance: ACETAMINOPHEN
  15. IBUPROFEN [Concomitant]
     Active Substance: IBUPROFEN
  16. POTASSIUM ACETATE [Concomitant]
     Active Substance: POTASSIUM ACETATE
  17. MOXIFLOXACIN [Concomitant]
     Active Substance: MOXIFLOXACIN
  18. OXYCODONE HYDROCHLORIDE [Concomitant]
     Active Substance: OXYCODONE HYDROCHLORIDE
  19. ERGOCALCIFEROL [Concomitant]
     Active Substance: ERGOCALCIFEROL
  20. ATROPINE SULFATE [Concomitant]
     Active Substance: ATROPINE SULFATE
  21. TAMSULOSIN HYDROCHLORIDE [Concomitant]
     Active Substance: TAMSULOSIN HYDROCHLORIDE
  22. ROSUVASTATIN CALCIUM [Concomitant]
     Active Substance: ROSUVASTATIN CALCIUM
  23. PROMETHAZINE HYDROCHLORIDE [Concomitant]
     Active Substance: PROMETHAZINE HYDROCHLORIDE
  24. CYCLOBENZAPRINE HYDROCHLORIDE [Concomitant]
     Active Substance: CYCLOBENZAPRINE HYDROCHLORIDE
  25. ESZOPICLONE [Concomitant]
     Active Substance: ESZOPICLONE
  26. LOPERAMIDE [Concomitant]
     Active Substance: LOPERAMIDE
  27. HYDROXYCHLOROQUINE SULFATE [Concomitant]
     Active Substance: HYDROXYCHLOROQUINE SULFATE

REACTIONS (6)
  - Sepsis [Not Recovered/Not Resolved]
  - Malaise [Unknown]
  - Irritability [Unknown]
  - Stress [Unknown]
  - Dehydration [Unknown]
  - Product dose omission issue [Unknown]
